FAERS Safety Report 7149245 (Version 2)
Quarter: 2013Q1

REPORT INFORMATION
  Report Type: Spontaneous
  Country: TR (occurrence: None)
  Receive Date: 20091001
  Receipt Date: 20130123
  Transmission Date: 20140127
  Serious: Yes (Hospitalization)
  Sender: FDA-Public Use
  Company Number: AUR-APL-2009-00685

PATIENT
  Age: 44 Year
  Sex: Female

DRUGS (3)
  1. FLUOXETINE (FLUOXETINE) [Suspect]
     Indication: PSYCHIATRIC SYMPTOM
  2. CICLOSPORIN (CICLOSPORIN) [Suspect]
     Indication: PUSTULAR PSORIASIS
     Dosage: 300MG - DAILY
  3. ACITRETIN (ACITRETIN) [Suspect]
     Indication: PUSTULAR PSORIASIS
     Dosage: 35MG - DAIYL

REACTIONS (3)
  - Pustular psoriasis [None]
  - Drug interaction [None]
  - Condition aggravated [None]
